FAERS Safety Report 12729562 (Version 1)
Quarter: 2016Q3

REPORT INFORMATION
  Report Type: Report from Study
  Country: HU (occurrence: HU)
  Receive Date: 20160909
  Receipt Date: 20160909
  Transmission Date: 20161109
  Serious: Yes (Hospitalization, Other)
  Sender: FDA-Public Use
  Company Number: HU-JNJFOC-20160626154

PATIENT
  Age: 60 Year
  Sex: Male
  Weight: 65 kg

DRUGS (8)
  1. FRONTIN [Concomitant]
     Active Substance: ALPRAZOLAM
     Indication: PANIC DISORDER
     Route: 065
  2. CONTRAMAL [Concomitant]
     Active Substance: TRAMADOL HYDROCHLORIDE
     Indication: PAIN
     Route: 065
  3. MILURIT [Concomitant]
     Active Substance: ALLOPURINOL
     Indication: BLOOD URIC ACID
     Route: 065
  4. TELVIRAN [Concomitant]
     Indication: DECREASED IMMUNE RESPONSIVENESS
     Route: 065
  5. NITROMINT [Concomitant]
     Indication: HYPERTENSION
     Route: 065
  6. IMBRUVICA [Suspect]
     Active Substance: IBRUTINIB
     Indication: CHRONIC LYMPHOCYTIC LEUKAEMIA
     Route: 048
     Dates: start: 201504
  7. BISOPROLOL [Concomitant]
     Active Substance: BISOPROLOL
     Indication: HYPERTONIA
     Route: 065
  8. PANALGORIN [Concomitant]
     Route: 065

REACTIONS (3)
  - Bronchitis [Recovered/Resolved]
  - Erysipelas [Recovered/Resolved]
  - Immunochemotherapy [Recovering/Resolving]

NARRATIVE: CASE EVENT DATE: 20160210
